FAERS Safety Report 10163813 (Version 1)
Quarter: 2014Q2

REPORT INFORMATION
  Report Type: Spontaneous
  Country: US (occurrence: US)
  Receive Date: 20140509
  Receipt Date: 20140509
  Transmission Date: 20141212
  Serious: No
  Sender: FDA-Public Use
  Company Number: US-009507513-2012SP023896

PATIENT
  Age: 6 Year
  Sex: Male

DRUGS (4)
  1. CLARITIN ORAL SOLUTION [Suspect]
     Indication: HYPERSENSITIVITY
     Dosage: 10 MG, PRN
     Route: 048
     Dates: start: 2010
  2. CLARITIN ORAL SOLUTION [Suspect]
     Indication: COUGH
     Dosage: 10 MG, ONCE
     Route: 048
     Dates: start: 20120408
  3. CLARITIN ORAL SOLUTION [Suspect]
     Indication: MEDICAL OBSERVATION
     Dosage: 10 MG, ONCE
     Route: 048
     Dates: start: 20120408
  4. CLARITIN ORAL SOLUTION [Suspect]
     Indication: HYPERSENSITIVITY

REACTIONS (1)
  - Overdose [Recovering/Resolving]
